FAERS Safety Report 18512443 (Version 1)
Quarter: 2020Q4

REPORT INFORMATION
  Report Type: Spontaneous
  Country: CZ (occurrence: CZ)
  Receive Date: 20201117
  Receipt Date: 20201117
  Transmission Date: 20210114
  Serious: Yes (Life-Threatening, Hospitalization, Other)
  Sender: FDA-Public Use
  Company Number: CZ-BRISTOL-MYERS SQUIBB COMPANY-BMS-2020-096005

PATIENT
  Age: 60 Year
  Sex: Female
  Weight: 63 kg

DRUGS (2)
  1. OPDIVO [Suspect]
     Active Substance: NIVOLUMAB
     Dosage: 1 MG/KG; FIRST 4 APPLICATIONS IN COMBINATION (IPILIMUMAB 3 MG/KG, NIVOLUMAB 1 MG/KG), THEN NIVOLUMAB
     Route: 042
     Dates: start: 20200407
  2. YERVOY [Suspect]
     Active Substance: IPILIMUMAB
     Indication: METASTATIC MALIGNANT MELANOMA
     Dosage: 3 MG/KG; FIRST 4 APPLICATIONS IN COMBINATION (IPILIMUMAB 3 MG/KG, NIVOLUMAB 1 MG/KG), THEN NIVOLUMAB
     Route: 042
     Dates: start: 20200407

REACTIONS (2)
  - Hypophysitis [Recovered/Resolved]
  - Glucocorticoid deficiency [Recovered/Resolved]

NARRATIVE: CASE EVENT DATE: 20200724
